FAERS Safety Report 9865184 (Version 1)
Quarter: 2014Q1

REPORT INFORMATION
  Report Type: Spontaneous
  Country: US (occurrence: US)
  Receive Date: 20140203
  Receipt Date: 20140203
  Transmission Date: 20141002
  Serious: No
  Sender: FDA-Public Use
  Company Number: US-ALLERGAN-1303352US

PATIENT
  Age: 81 Year
  Sex: Female

DRUGS (5)
  1. RESTASIS [Suspect]
     Indication: DRY EYE
     Dosage: 2 GTT, BID
     Route: 047
     Dates: start: 20130301, end: 20130303
  2. METOPROLOL [Concomitant]
     Indication: HYPERTENSION
     Dosage: 50 UNITS, QD
     Route: 048
  3. OMEPRAZOLE [Concomitant]
     Indication: GASTROOESOPHAGEAL REFLUX DISEASE
     Dosage: 10 MG, UNK
     Route: 048
  4. SYNTHROID [Concomitant]
     Indication: POST PROCEDURAL HYPOTHYROIDISM
     Dosage: UNK UNK, QD
     Route: 048
     Dates: start: 1983
  5. EYE VITAMINS [Concomitant]
     Indication: VITAMIN SUPPLEMENTATION
     Dosage: UNK

REACTIONS (4)
  - Visual impairment [Recovered/Resolved]
  - Eye pain [Unknown]
  - Eye irritation [Recovering/Resolving]
  - Eye pain [Unknown]
